FAERS Safety Report 8459724-1 (Version None)
Quarter: 2012Q2

REPORT INFORMATION
  Report Type: 
  Country: None (occurrence: None)
  Receive Date: 20120622
  Receipt Date: 20120611
  Transmission Date: 20120825
  Serious: Yes (Other)
  Sender: FDA-Public Use
  Company Number: US-MERCK-1206USA01760B1

PATIENT
  Sex: Female
  Weight: 1 kg

DRUGS (6)
  1. INTELENCE [Concomitant]
     Route: 064
     Dates: start: 20111115, end: 20120516
  2. NORVIR [Concomitant]
     Route: 064
     Dates: start: 20111115, end: 20120516
  3. RETROVIR [Concomitant]
     Route: 064
     Dates: start: 20111115, end: 20120516
  4. ISENTRESS [Suspect]
     Indication: HIV INFECTION
     Route: 064
     Dates: start: 20111115, end: 20120516
  5. PREZISTA [Concomitant]
     Route: 064
     Dates: start: 20111115, end: 20120516
  6. EPZICOM [Concomitant]
     Route: 064
     Dates: start: 20111115, end: 20120516

REACTIONS (5)
  - SMALL FOR DATES BABY [None]
  - LOW BIRTH WEIGHT BABY [None]
  - FOETAL GROWTH RESTRICTION [None]
  - PREMATURE BABY [None]
  - FOETAL EXPOSURE DURING PREGNANCY [None]
